FAERS Safety Report 7442326-3 (Version None)
Quarter: 2011Q2

REPORT INFORMATION
  Report Type: 
  Country: None (occurrence: None)
  Receive Date: 20110428
  Receipt Date: 20110427
  Transmission Date: 20111010
  Serious: Yes (Hospitalization)
  Sender: FDA-Public Use
  Company Number: LT-ROCHE-711120

PATIENT
  Sex: Male
  Weight: 90 kg

DRUGS (8)
  1. METOPROLOLUM [Concomitant]
  2. OMEPRAZOLUM [Concomitant]
     Dates: start: 20061227
  3. DICLOFENAC [Concomitant]
  4. SPIRAPRILUM [Concomitant]
     Dates: start: 20091126
  5. NEBIVOLOLUM [Concomitant]
     Dates: start: 20091127
  6. TOCILIZUMAB [Suspect]
     Indication: RHEUMATOID ARTHRITIS
     Dosage: FORM REPORTED AS INFUSION. LAST DOSE PRIOR TO SAE: 8 JUNE 2010
     Route: 042
     Dates: start: 20070124
  7. BLINDED TOCILIZUMAB [Suspect]
     Indication: RHEUMATOID ARTHRITIS
     Dosage: THE PATIENT WAS PREVIOUSLY ENROLLED IN WA17824 AND WAS RECIEVING MRA + MRA
     Route: 042
  8. METHYLPREDNISOLONUM [Concomitant]
     Dates: start: 20050101

REACTIONS (1)
  - NEPHROLITHIASIS [None]
